FAERS Safety Report 17212860 (Version 3)
Quarter: 2024Q3

REPORT INFORMATION
  Report Type: Spontaneous
  Country: US (occurrence: US)
  Receive Date: 20191230
  Receipt Date: 20240924
  Transmission Date: 20241016
  Serious: Yes (Life-Threatening, Hospitalization, Other)
  Sender: ALKEM
  Company Number: None

PATIENT
  Age: 66 Year
  Sex: Male

DRUGS (6)
  1. MYCOPHENOLATE MOFETIL [Suspect]
     Active Substance: MYCOPHENOLATE MOFETIL
     Indication: Immunosuppressant drug therapy
     Dosage: UNK
     Route: 065
  2. SIROLIMUS [Suspect]
     Active Substance: SIROLIMUS
     Indication: Immunosuppressant drug therapy
     Dosage: UNK
     Route: 065
  3. ACYCLOVIR [Suspect]
     Active Substance: ACYCLOVIR
     Indication: Herpes zoster meningoencephalitis
     Dosage: 10 MILLIGRAM/KILOGRAM, TID (EVERY 8 HOURS)
     Route: 042
  4. ACYCLOVIR [Suspect]
     Active Substance: ACYCLOVIR
     Indication: Varicella zoster virus infection
  5. ACYCLOVIR [Suspect]
     Active Substance: ACYCLOVIR
     Indication: Ophthalmic herpes zoster
  6. PREDNISONE [Suspect]
     Active Substance: PREDNISONE
     Indication: Immunosuppressant drug therapy
     Dosage: 12.5 MILLIGRAM, QD
     Route: 065

REACTIONS (9)
  - Mental status changes [Recovering/Resolving]
  - Necrotising retinitis [Recovered/Resolved]
  - Unresponsive to stimuli [Recovered/Resolved]
  - Herpes zoster meningoencephalitis [Recovered/Resolved]
  - Ophthalmic herpes zoster [Recovered/Resolved]
  - Varicella zoster virus infection [Recovered/Resolved]
  - Agitation [Recovering/Resolving]
  - Drug resistance [Unknown]
  - Drug ineffective [Unknown]
